FAERS Safety Report 19321792 (Version 1)
Quarter: 2021Q2

REPORT INFORMATION
  Report Type: Report from Study
  Country: KR (occurrence: KR)
  Receive Date: 20210527
  Receipt Date: 20210527
  Transmission Date: 20210717
  Serious: Yes (Hospitalization, Other)
  Sender: FDA-Public Use
  Company Number: KR-GILEAD-E2B_00000428

PATIENT
  Age: 74 Year
  Sex: Male
  Weight: 65.3 kg

DRUGS (11)
  1. LEGALON [Concomitant]
     Active Substance: DIETARY SUPPLEMENT\HERBALS\MILK THISTLE
     Indication: PROPHYLAXIS
     Route: 048
     Dates: start: 20050419
  2. ADEFOVIR DIPIVOXIL. [Suspect]
     Active Substance: ADEFOVIR DIPIVOXIL
     Indication: CHRONIC HEPATITIS B
     Dosage: 10 MG, QD
     Route: 048
     Dates: start: 20080808
  3. PHAZYME [Concomitant]
     Active Substance: DIMETHICONE 410
     Indication: DYSPEPSIA
     Route: 048
     Dates: start: 20050419
  4. ZEFFIX [Suspect]
     Active Substance: LAMIVUDINE
     Indication: CHRONIC HEPATITIS B
     Dosage: 100 MG
     Route: 048
     Dates: start: 20050905
  5. URSODEOXYCHOLIC ACID [Concomitant]
     Active Substance: URSODIOL
     Indication: PROPHYLAXIS
     Dosage: UNK
     Route: 048
     Dates: start: 20050419
  6. CALCIUM FOLINATE VIAL [Concomitant]
     Dosage: UNK
     Dates: start: 20100107
  7. CAPTOPRIL. [Concomitant]
     Active Substance: CAPTOPRIL
  8. TEGAFUR [Concomitant]
     Active Substance: TEGAFUR
  9. ZOLPIDEM [Concomitant]
     Active Substance: ZOLPIDEM TARTRATE
  10. DEXAMETHASONE. [Concomitant]
     Active Substance: DEXAMETHASONE
  11. APREPITANT. [Concomitant]
     Active Substance: APREPITANT

REACTIONS (4)
  - Hepatocellular injury [Recovered/Resolved]
  - Hepatocellular carcinoma [Unknown]
  - Hepatic cancer [Recovered/Resolved]
  - Metastases to lung [Recovered/Resolved]

NARRATIVE: CASE EVENT DATE: 20090810
